FAERS Safety Report 9979250 (Version 2)
Quarter: 2014Q1

REPORT INFORMATION
  Report Type: Report from Study
  Country: PR (occurrence: PR)
  Receive Date: 20140306
  Receipt Date: 20140306
  Transmission Date: 20141002
  Serious: No
  Sender: FDA-Public Use
  Company Number: PR-ABBVIE-13P-131-1139462-00

PATIENT
  Age: 71 Year
  Sex: Female
  Weight: 83.99 kg

DRUGS (9)
  1. HUMIRA [Suspect]
     Indication: RHEUMATOID ARTHRITIS
     Route: 058
  2. HUMIRA [Suspect]
     Route: 058
  3. SYNTHROID [Concomitant]
     Indication: THYROID DISORDER
     Route: 048
  4. ALBUTEROL [Concomitant]
     Indication: ASTHMA
     Dosage: 1 THERAPY FOR 6 HOURS
     Route: 055
  5. ADVAIR [Concomitant]
     Indication: ASTHMA
     Route: 055
  6. METHOTREXATE [Concomitant]
     Indication: ARTHRITIS
     Dosage: UNKNOWN DOSE
     Route: 048
  7. IRBESARTAN [Concomitant]
     Indication: HYPERTENSION
     Dosage: UNKNOWN DOSE
     Route: 048
  8. PROZAC [Concomitant]
     Indication: DEPRESSION
     Dosage: UNKNOWN DOSE
     Route: 048
  9. PREDNISONE [Concomitant]
     Route: 048

REACTIONS (4)
  - Cough [Recovered/Resolved]
  - Increased upper airway secretion [Recovered/Resolved]
  - Bronchitis chronic [Unknown]
  - Rash [Unknown]
